FAERS Safety Report 17390997 (Version 1)
Quarter: 2020Q1

REPORT INFORMATION
  Report Type: Report from Study
  Country: IE (occurrence: IE)
  Receive Date: 20200207
  Receipt Date: 20200207
  Transmission Date: 20200409
  Serious: Yes (Other)
  Sender: FDA-Public Use
  Company Number: IE-JNJFOC-20200139314

PATIENT
  Age: 76 Year
  Sex: Female

DRUGS (8)
  1. STELARA [Suspect]
     Active Substance: USTEKINUMAB
     Indication: TEMPORAL ARTERITIS
     Dosage: LAST ADMINISTERED ON 30-OCT-2019
     Route: 058
     Dates: start: 20181025
  2. BISOPROLOL [Concomitant]
     Active Substance: BISOPROLOL
     Route: 050
  3. ASPIRIN                            /00002701/ [Concomitant]
     Active Substance: ASPIRIN
     Route: 050
  4. LANSOPRAZOLE. [Concomitant]
     Active Substance: LANSOPRAZOLE
     Route: 050
  5. ARGININE [Concomitant]
     Active Substance: ARGININE
     Route: 050
  6. ATORVASTATIN [Concomitant]
     Active Substance: ATORVASTATIN
     Route: 050
  7. CALCICHEW [Concomitant]
     Active Substance: CALCIUM CARBONATE
     Route: 050
  8. DELTACORTRIL [Concomitant]
     Active Substance: PREDNISOLONE
     Route: 050

REACTIONS (6)
  - Skin mass [Recovered/Resolved]
  - Umbilical haemorrhage [Recovered/Resolved]
  - Nasopharyngitis [Recovering/Resolving]
  - Mass [Recovered/Resolved]
  - Off label use [Unknown]
  - Product use in unapproved indication [Unknown]

NARRATIVE: CASE EVENT DATE: 20181025
